FAERS Safety Report 13596245 (Version 1)
Quarter: 2017Q2

REPORT INFORMATION
  Report Type: Spontaneous
  Country: US (occurrence: US)
  Receive Date: 20170531
  Receipt Date: 20170531
  Transmission Date: 20170830
  Serious: No
  Sender: FDA-Public Use
  Company Number: US-JNJFOC-20170328260

PATIENT
  Age: 82 Year
  Sex: Female
  Weight: 55.34 kg

DRUGS (2)
  1. TYLENOL EXTRA STRENGTH [Suspect]
     Active Substance: ACETAMINOPHEN
     Indication: DYSKINESIA
     Dosage: HALF TO ONE TABLET, 1 TO 3 TIMES PER DAY
     Route: 048
  2. TYLENOL EXTRA STRENGTH [Suspect]
     Active Substance: ACETAMINOPHEN
     Indication: TREMOR
     Dosage: HALF TO ONE TABLET, 1 TO 3 TIMES PER DAY
     Route: 048

REACTIONS (3)
  - Therapeutic response unexpected [Unknown]
  - Wrong technique in product usage process [Unknown]
  - Product use in unapproved indication [Unknown]
